FAERS Safety Report 5852065-8 (Version None)
Quarter: 2008Q3

REPORT INFORMATION
  Report Type: 
  Country: None (occurrence: None)
  Receive Date: 20080819
  Receipt Date: 20080819
  Transmission Date: 20090109
  Serious: Yes (Hospitalization)
  Sender: FDA-Public Use
  Company Number: None

PATIENT
  Age: 68 Year
  Sex: Male
  Weight: 93 kg

DRUGS (5)
  1. WARFARIN SODIUM [Suspect]
     Indication: ATRIAL FIBRILLATION
     Dosage: 7.5 MG DAILY PO CHRONIC
     Route: 048
  2. ASPIRIN [Suspect]
     Indication: ATRIAL FIBRILLATION
     Dosage: 81 G DAILY PO CHRONIC
     Route: 048
  3. AVALIDE [Concomitant]
  4. COUMADIN [Concomitant]
  5. POTASSIUM CHLORIDE [Concomitant]

REACTIONS (3)
  - ANAEMIA [None]
  - DUODENAL ULCER HAEMORRHAGE [None]
  - OESOPHAGITIS HAEMORRHAGIC [None]
